FAERS Safety Report 21953935 (Version 1)
Quarter: 2023Q1

REPORT INFORMATION
  Report Type: Report from Study
  Country: US (occurrence: US)
  Receive Date: 20230204
  Receipt Date: 20230204
  Transmission Date: 20230418
  Serious: No
  Sender: FDA-Public Use
  Company Number: US-002147023-NVSC2023US022890

PATIENT
  Age: 48 Year
  Sex: Female

DRUGS (1)
  1. COSENTYX [Suspect]
     Active Substance: SECUKINUMAB
     Indication: Psoriasis
     Dosage: 300 MG, QMO
     Route: 030
     Dates: start: 20211230, end: 20230131

REACTIONS (3)
  - Condition aggravated [Not Recovered/Not Resolved]
  - Incorrect route of product administration [Unknown]
  - Product use issue [Not Recovered/Not Resolved]

NARRATIVE: CASE EVENT DATE: 20230117
